FAERS Safety Report 4945655-8 (Version None)
Quarter: 2006Q1

REPORT INFORMATION
  Report Type: 
  Country: None (occurrence: None)
  Receive Date: 20060316
  Receipt Date: 20060308
  Transmission Date: 20060701
  Serious: Yes (Hospitalization)
  Sender: FDA-Public Use
  Company Number: NZ-JNJFOC-20060301708

PATIENT
  Sex: Male
  Weight: 93 kg

DRUGS (1)
  1. GALANTAMINE HYDROBROMIDE [Suspect]
     Route: 048

REACTIONS (4)
  - AGGRESSION [None]
  - DELIRIUM [None]
  - DEMENTIA [None]
  - UPPER RESPIRATORY TRACT INFECTION [None]
